FAERS Safety Report 18502498 (Version 1)
Quarter: 2020Q4

REPORT INFORMATION
  Report Type: Spontaneous
  Country: US (occurrence: US)
  Receive Date: 20201113
  Receipt Date: 20201113
  Transmission Date: 20210114
  Serious: No
  Sender: FDA-Public Use
  Company Number: US-INCYTE CORPORATION-2020IN011055

PATIENT

DRUGS (1)
  1. JAKAFI [Suspect]
     Active Substance: RUXOLITINIB
     Indication: ESSENTIAL THROMBOCYTHAEMIA
     Dosage: 10 MILLIGRAM, BID
     Route: 048
     Dates: start: 20200619

REACTIONS (8)
  - Weight decreased [Unknown]
  - Insomnia [Unknown]
  - Off label use [Unknown]
  - Fatigue [Unknown]
  - Diarrhoea [Unknown]
  - Decreased appetite [Unknown]
  - Headache [Unknown]
  - Gastrooesophageal reflux disease [Unknown]

NARRATIVE: CASE EVENT DATE: 20200619
